FAERS Safety Report 9280916 (Version 2)
Quarter: 2013Q2

REPORT INFORMATION
  Report Type: Spontaneous
  Country: CH (occurrence: CH)
  Receive Date: 20130509
  Receipt Date: 20130520
  Transmission Date: 20140414
  Serious: Yes (Life-Threatening, Hospitalization, Other)
  Sender: FDA-Public Use
  Company Number: CH-ELI_LILLY_AND_COMPANY-CH201305001241

PATIENT
  Age: 35 Year
  Sex: Male

DRUGS (7)
  1. EFIENT [Suspect]
     Indication: STENT PLACEMENT
     Dosage: 60 MG, SINGLE
     Route: 048
     Dates: start: 20111219, end: 20111219
  2. EFIENT [Suspect]
     Dosage: 10 MG, QD
     Route: 048
     Dates: start: 20111227, end: 20120104
  3. EFIENT [Suspect]
     Dosage: 10 MG, QD
     Route: 048
     Dates: start: 20110110
  4. CANNABIS [Concomitant]
  5. COCAINE [Concomitant]
  6. ALCOHOL [Concomitant]
  7. NICOTINE [Concomitant]

REACTIONS (4)
  - Extradural haematoma [Recovering/Resolving]
  - Wound haemorrhage [Recovering/Resolving]
  - Fall [Recovered/Resolved]
  - Polysubstance dependence [Recovering/Resolving]
